FAERS Safety Report 9162697 (Version 1)
Quarter: 2013Q1

REPORT INFORMATION
  Report Type: Spontaneous
  Country: US (occurrence: None)
  Receive Date: 20130222
  Receipt Date: 20130222
  Transmission Date: 20140127
  Serious: Yes (Hospitalization)
  Sender: FDA-Public Use
  Company Number: SYM-2013-00711

PATIENT
  Age: 57 Year
  Sex: Female

DRUGS (7)
  1. BUPROPION HYDROCHLORIDE (BUPROPION HYDROCHLORIDE) (BUPROPION HYDROCHLORIDE) [Suspect]
     Indication: DEPRESSION
     Route: 048
     Dates: start: 2009
  2. BLINDED VACCINES (VACCINES) (INJECTION) (NULL [Suspect]
     Indication: PRODUCT USED FOR UNKNOWN INDICATION
     Dosage: UNKNOWN, INTRAMUSCULAR
     Dates: start: 20101005, end: 20101005
  3. ALENDRONATE SODIUM (ALENDRONATE SODIUM) (ALENDRONATE SODIUM) [Suspect]
     Indication: OSTEOPENIA
     Route: 048
     Dates: start: 201002
  4. CALCIUM SALT (CALCIUM) (CALCIUM) [Suspect]
     Indication: OSTEOPENIA
     Route: 048
     Dates: start: 2005
  5. EZETIMIBE + SIMVASTATIN (INEGY) (SIMVASTATIN, EZETIMIBE) [Suspect]
     Indication: DYSLIPIDAEMIA
     Route: 048
     Dates: start: 2000
  6. AMOXICILLIN/CLAVULANATE POTASSIUM [Suspect]
     Indication: DIVERTICULITIS
     Route: 048
     Dates: start: 20110818, end: 20110901
  7. INFLUENZA VACCINE (INFLUENZA VACCINE) (INFLUENZA VACCINE) [Concomitant]

REACTIONS (3)
  - Diverticulitis [None]
  - Anastomotic leak [None]
  - Diarrhoea [None]
